FAERS Safety Report 4921179-9 (Version None)
Quarter: 2006Q1

REPORT INFORMATION
  Report Type: 
  Country: None (occurrence: None)
  Receive Date: 20060217
  Receipt Date: 20060203
  Transmission Date: 20060701
  Serious: Yes (Hospitalization)
  Sender: FDA-Public Use
  Company Number: DSA_27688_2006

PATIENT
  Age: 42 Year
  Sex: Female

DRUGS (2)
  1. TAVOR [Suspect]
     Dosage: 3 MG ONCE PO
     Route: 048
     Dates: start: 20060121, end: 20060121
  2. ZOLPIDEM [Suspect]
     Dosage: 20 MG ONCE PO
     Route: 048
     Dates: start: 20060121, end: 20060121

REACTIONS (4)
  - FATIGUE [None]
  - INTENTIONAL OVERDOSE [None]
  - SUICIDE ATTEMPT [None]
  - TACHYCARDIA [None]
